FAERS Safety Report 12220888 (Version 1)
Quarter: 2016Q1

REPORT INFORMATION
  Report Type: Spontaneous
  Country: US (occurrence: US)
  Receive Date: 20160330
  Receipt Date: 20160330
  Transmission Date: 20160526
  Serious: No
  Sender: FDA-Public Use
  Company Number: US-PFIZER INC-2016181895

PATIENT
  Age: 61 Year
  Sex: Female
  Weight: 79.83 kg

DRUGS (3)
  1. BENAZEPRIL [Concomitant]
     Active Substance: BENAZEPRIL HYDROCHLORIDE
     Indication: HYPERTENSION
     Dosage: 20 MG, DAILY (20MG ONE TABLET BY MOUTH DAILY)
     Route: 048
     Dates: start: 2015
  2. LYRICA [Suspect]
     Active Substance: PREGABALIN
     Indication: FIBROMYALGIA
     Dosage: 100 MG, 2X/DAY
     Route: 048
     Dates: start: 2013
  3. LYRICA [Suspect]
     Active Substance: PREGABALIN
     Dosage: 300MG ONE CAPSULE BY MOUTH TWO OR THREE TIMES A DAY AS NEEDED
     Route: 048
     Dates: start: 2015

REACTIONS (14)
  - Pain in extremity [Unknown]
  - Bedridden [Unknown]
  - Throat irritation [Recovered/Resolved]
  - Insomnia [Unknown]
  - Somnolence [Recovered/Resolved]
  - Thermal burn [Unknown]
  - Activities of daily living impaired [Unknown]
  - Gastrooesophageal reflux disease [Recovered/Resolved]
  - Peripheral swelling [Unknown]
  - Hypoaesthesia [Unknown]
  - Pain [Unknown]
  - Hypertension [Unknown]
  - Inflammation [Not Recovered/Not Resolved]
  - Arthropathy [Unknown]

NARRATIVE: CASE EVENT DATE: 2013
